FAERS Safety Report 6054307-5 (Version None)
Quarter: 2009Q1

REPORT INFORMATION
  Report Type: 
  Country: None (occurrence: None)
  Receive Date: 20090127
  Receipt Date: 20090116
  Transmission Date: 20090719
  Serious: Yes (Hospitalization)
  Sender: FDA-Public Use
  Company Number: PHHY2009GB01960

PATIENT
  Sex: Male

DRUGS (1)
  1. NEORAL [Suspect]
     Indication: COLITIS ULCERATIVE

REACTIONS (1)
  - PROCTOCOLECTOMY [None]
